FAERS Safety Report 7041456-8 (Version None)
Quarter: 2010Q4

REPORT INFORMATION
  Report Type: 
  Country: None (occurrence: None)
  Receive Date: 20101013
  Receipt Date: 20101004
  Transmission Date: 20110411
  Serious: Yes (Death, Other)
  Sender: FDA-Public Use
  Company Number: CH-ROCHE-731277

PATIENT

DRUGS (4)
  1. CAPECITABINE [Suspect]
     Dosage: ON DAYS 1-14, FOLLOWED BY ONE WEEK REST.
     Route: 065
  2. OXALIPLATIN [Suspect]
     Dosage: FORM: INFUSION, ON DAY 1 OF 21 DAY CYCLE.
     Route: 065
  3. 5-HT3 ANTAGONISTS [Concomitant]
     Dosage: BEFORE OXALIPLATIN INFUSION.
  4. DEXAMETHASONE [Concomitant]
     Dosage: BEFORE OXALIPLATIN INFUSION.

REACTIONS (12)
  - CLOSTRIDIUM BACTERAEMIA [None]
  - DIARRHOEA [None]
  - DYSAESTHESIA PHARYNX [None]
  - FATIGUE [None]
  - GASTROINTESTINAL TOXICITY [None]
  - HYPERBILIRUBINAEMIA [None]
  - LARYNGOSPASM [None]
  - NAUSEA [None]
  - NEUROTOXICITY [None]
  - PALMAR-PLANTAR ERYTHRODYSAESTHESIA SYNDROME [None]
  - PULMONARY EMBOLISM [None]
  - THROMBOCYTOPENIA [None]
